FAERS Safety Report 6725270-6 (Version None)
Quarter: 2010Q2

REPORT INFORMATION
  Report Type: 
  Country: None (occurrence: None)
  Receive Date: 20100513
  Receipt Date: 20100513
  Transmission Date: 20101027
  Serious: Yes (Disabling)
  Sender: FDA-Public Use
  Company Number: None

PATIENT
  Sex: Female
  Weight: 74.3899 kg

DRUGS (2)
  1. METHOTREXATE [Suspect]
     Indication: RHEUMATOID ARTHRITIS
     Dosage: 3MG DAILEY
     Dates: start: 20000101, end: 20070101
  2. HUMIRA [Suspect]
     Dosage: BI-MONTHLY SHOTS

REACTIONS (3)
  - ABDOMINAL PAIN UPPER [None]
  - CHRONIC OBSTRUCTIVE PULMONARY DISEASE [None]
  - PULMONARY FIBROSIS [None]
